FAERS Safety Report 20896730 (Version 1)
Quarter: 2022Q2

REPORT INFORMATION
  Report Type: Spontaneous
  Country: US (occurrence: None)
  Receive Date: 20220530
  Receipt Date: 20220530
  Transmission Date: 20220721
  Serious: No
  Sender: FDA-Public Use
  Company Number: None

PATIENT
  Age: 67 Year
  Sex: Female
  Weight: 55.8 kg

DRUGS (6)
  1. GABAPENTIN [Suspect]
     Active Substance: GABAPENTIN
     Indication: Neuralgia
     Dosage: OTHER QUANTITY : 1 CAPSULE(S);?FREQUENCY : AT BEDTIME;?
     Route: 048
     Dates: start: 20220504, end: 20220509
  2. TRAMADOL [Concomitant]
     Active Substance: TRAMADOL
  3. Ciclopirox 8 % solution [Concomitant]
  4. VITAMIN D3 [Concomitant]
     Active Substance: CHOLECALCIFEROL
  5. 2000 IU [Concomitant]
  6. Vitamin B12 1000 mcg [Concomitant]

REACTIONS (2)
  - Vision blurred [None]
  - Photopsia [None]

NARRATIVE: CASE EVENT DATE: 20220509
